FAERS Safety Report 25141358 (Version 1)
Quarter: 2025Q1

REPORT INFORMATION
  Report Type: Spontaneous
  Country: JP (occurrence: JP)
  Receive Date: 20250331
  Receipt Date: 20250331
  Transmission Date: 20250408
  Serious: Yes (Other)
  Sender: AMGEN
  Company Number: JP-AMGEN-JPNSP2025059778

PATIENT
  Age: 14 Year
  Sex: Female

DRUGS (3)
  1. BLINATUMOMAB [Suspect]
     Active Substance: BLINATUMOMAB
     Indication: B-cell type acute leukaemia
     Route: 065
  2. BORTEZOMIB [Concomitant]
     Active Substance: BORTEZOMIB
  3. Fludarabine;Melphalan [Concomitant]

REACTIONS (3)
  - B-cell type acute leukaemia [Unknown]
  - Venoocclusive liver disease [Unknown]
  - Varices oesophageal [Unknown]
